FAERS Safety Report 24160406 (Version 1)
Quarter: 2024Q3

REPORT INFORMATION
  Report Type: Spontaneous
  Country: US (occurrence: US)
  Receive Date: 20240801
  Receipt Date: 20240801
  Transmission Date: 20241017
  Serious: Yes (Other)
  Sender: AMGEN
  Company Number: US-AMGEN-USASP2024148677

PATIENT
  Age: 82 Year
  Sex: Female

DRUGS (1)
  1. PREDNISONE [Suspect]
     Active Substance: PREDNISONE
     Indication: Skin ulcer
     Dosage: 0.5 MILLIGRAM/KILOGRAM (FOR ONE MONTH)
     Route: 065

REACTIONS (3)
  - Segmented hyalinising vasculitis [Recovered/Resolved]
  - Gastrointestinal disorder [Unknown]
  - Insomnia [Unknown]
